FAERS Safety Report 22532499 (Version 5)
Quarter: 2024Q1

REPORT INFORMATION
  Report Type: Spontaneous
  Country: US (occurrence: US)
  Receive Date: 20230607
  Receipt Date: 20240116
  Transmission Date: 20240410
  Serious: Yes (Death, Hospitalization, Other)
  Sender: FDA-Public Use
  Company Number: US-PPDUS-2023ST000848

PATIENT
  Age: 90 Year
  Sex: Female

DRUGS (3)
  1. ORSERDU [Suspect]
     Active Substance: ELACESTRANT
     Indication: Product used for unknown indication
     Route: 048
  2. ORSERDU [Suspect]
     Active Substance: ELACESTRANT
     Dosage: ONE TABLET, EVERY OTHER DAY.
     Route: 048
     Dates: start: 202305
  3. ORSERDU [Suspect]
     Active Substance: ELACESTRANT
     Dosage: 345MG ONE TABLET, ONCE A DAY.
     Route: 048
     Dates: start: 202304

REACTIONS (9)
  - Failure to thrive [Fatal]
  - Thrombocytopenia [Unknown]
  - Hip fracture [Unknown]
  - Adverse event [Recovered/Resolved]
  - Platelet count decreased [Unknown]
  - Tumour marker increased [Unknown]
  - Hepatic enzyme increased [Unknown]
  - Inappropriate schedule of product administration [Unknown]
  - Product dose omission issue [Recovered/Resolved]

NARRATIVE: CASE EVENT DATE: 20230801
